FAERS Safety Report 25625982 (Version 1)
Quarter: 2025Q3

REPORT INFORMATION
  Report Type: Report from Study
  Country: US (occurrence: US)
  Receive Date: 20250731
  Receipt Date: 20250731
  Transmission Date: 20251020
  Serious: Yes (Hospitalization, Other)
  Sender: ABBVIE
  Company Number: US-ABBVIE-6373608

PATIENT
  Age: 38 Year
  Sex: Male
  Weight: 90.718 kg

DRUGS (17)
  1. HUMIRA [Suspect]
     Active Substance: ADALIMUMAB
     Indication: Colitis ulcerative
     Dosage: FORM STRENGTH: 40 MILLIGRAM
     Route: 058
     Dates: start: 2023
  2. HUMIRA [Suspect]
     Active Substance: ADALIMUMAB
     Route: 058
     Dates: start: 20240220, end: 20250717
  3. CLOBETASOL [Concomitant]
     Active Substance: CLOBETASOL
     Indication: Psoriasis
  4. OLANZAPINE [Concomitant]
     Active Substance: OLANZAPINE
     Indication: Autism spectrum disorder
  5. DEPAKOTE ER [Concomitant]
     Active Substance: DIVALPROEX SODIUM
     Indication: Seizure
  6. LEVSIN [Concomitant]
     Active Substance: HYOSCYAMINE SULFATE
     Indication: Product used for unknown indication
  7. ERYTHROMYCIN [Concomitant]
     Active Substance: ERYTHROMYCIN
     Indication: Infection prophylaxis
  8. VITAMIN D2 [Concomitant]
     Active Substance: ERGOCALCIFEROL
     Indication: Product used for unknown indication
  9. TYLENOL [Concomitant]
     Active Substance: ACETAMINOPHEN
     Indication: Back pain
  10. Mesalamine extended release [Concomitant]
     Indication: Colitis ulcerative
  11. LISINOPRIL [Suspect]
     Active Substance: LISINOPRIL
     Indication: Blood pressure management
     Dosage: FORM STRENGTH: 5 MILLIGRAM
     Route: 048
     Dates: end: 202507
  12. ALBUTEROL [Concomitant]
     Active Substance: ALBUTEROL
     Indication: Asthma
     Route: 055
  13. ALPRAZOLAM [Concomitant]
     Active Substance: ALPRAZOLAM
     Indication: Anxiety
  14. SYSTANE (HYPROMELLOSE 2910 (4000 MPA.S)) [Concomitant]
     Active Substance: HYPROMELLOSE 2910 (4000 MPA.S)
     Indication: Dry eye
  15. CALCIUM [Concomitant]
     Active Substance: CALCIUM
     Indication: Mineral supplementation
     Dosage: 1 TABLET
  16. BUSPAR [Concomitant]
     Active Substance: BUSPIRONE HYDROCHLORIDE
     Indication: Anxiety
  17. IBUPROFEN [Suspect]
     Active Substance: IBUPROFEN
     Indication: Muscle spasms
     Route: 048

REACTIONS (20)
  - Balance disorder [Recovered/Resolved]
  - Hypotension [Recovered/Resolved]
  - Somnolence [Not Recovered/Not Resolved]
  - Haemorrhage [Not Recovered/Not Resolved]
  - Abdominal discomfort [Recovering/Resolving]
  - Inflammation [Not Recovered/Not Resolved]
  - Renal failure [Not Recovered/Not Resolved]
  - Decreased appetite [Recovered/Resolved]
  - Colitis [Not Recovered/Not Resolved]
  - Haematochezia [Recovering/Resolving]
  - Dizziness [Recovered/Resolved]
  - Gastrointestinal tract irritation [Recovering/Resolving]
  - Visual impairment [Not Recovered/Not Resolved]
  - Blood sodium decreased [Recovered/Resolved]
  - Nausea [Recovered/Resolved]
  - Drug ineffective [Not Recovered/Not Resolved]
  - Fall [Not Recovered/Not Resolved]
  - Dehydration [Recovered/Resolved]
  - Diarrhoea [Not Recovered/Not Resolved]
  - Abdominal pain [Not Recovered/Not Resolved]

NARRATIVE: CASE EVENT DATE: 20240101
